FAERS Safety Report 26122939 (Version 3)
Quarter: 2025Q4

REPORT INFORMATION
  Report Type: Spontaneous
  Country: JP (occurrence: JP)
  Receive Date: 20251204
  Receipt Date: 20251231
  Transmission Date: 20260118
  Serious: Yes (Hospitalization, Other)
  Sender: PFIZER
  Company Number: JP-ONO-2025JP021395

PATIENT
  Age: 53 Year
  Sex: Male
  Weight: 81 kg

DRUGS (8)
  1. BRAFTOVI [Suspect]
     Active Substance: ENCORAFENIB
     Indication: Colorectal cancer
     Dosage: 4 DF, 1X/DAY
     Route: 048
     Dates: start: 20250910, end: 20251110
  2. BRAFTOVI [Suspect]
     Active Substance: ENCORAFENIB
     Indication: Colon cancer
  3. MEKTOVI [Suspect]
     Active Substance: BINIMETINIB
     Indication: Colorectal cancer
     Dosage: 45 MG, 2X/DAY
     Route: 048
     Dates: start: 20250910, end: 20251110
  4. MEKTOVI [Suspect]
     Active Substance: BINIMETINIB
     Indication: Colon cancer
  5. ERBITUX [Suspect]
     Active Substance: CETUXIMAB
     Indication: Colorectal cancer
     Dosage: 500 MG, WEEKLY
     Route: 042
     Dates: start: 20250910, end: 20251105
  6. ERBITUX [Suspect]
     Active Substance: CETUXIMAB
     Indication: Colon cancer
     Dosage: UNK
     Route: 042
     Dates: start: 20250910
  7. BIO-THREE [Concomitant]
     Active Substance: DIETARY SUPPLEMENT\PROBIOTICS NOS
     Dosage: UNK
     Route: 048
     Dates: start: 20250910, end: 20251112
  8. VONOPRAZAN FUMARATE [Concomitant]
     Active Substance: VONOPRAZAN FUMARATE
     Dosage: UNK
     Route: 065
     Dates: end: 20251105

REACTIONS (3)
  - Cholestasis [Not Recovered/Not Resolved]
  - Abdominal pain [Unknown]
  - Melaena [Unknown]

NARRATIVE: CASE EVENT DATE: 20251105
